FAERS Safety Report 11586522 (Version 1)
Quarter: 2015Q3

REPORT INFORMATION
  Report Type: Spontaneous
  Country: US (occurrence: US)
  Receive Date: 20150916
  Receipt Date: 20150916
  Transmission Date: 20151125
  Serious: No
  Sender: FDA-Public Use
  Company Number: US-ELI_LILLY_AND_COMPANY-US200803001387

PATIENT
  Age: 74 Year
  Sex: Female
  Weight: 65.31 kg

DRUGS (8)
  1. FORTEO [Suspect]
     Active Substance: TERIPARATIDE
     Indication: OSTEOPOROSIS
     Dosage: 20 UG, DAILY (1/D)
     Dates: start: 20070823, end: 20080220
  2. CALCIUM [Concomitant]
     Active Substance: CALCIUM
     Dosage: 3 D/F, DAILY (1/D)
  3. FORTEO [Suspect]
     Active Substance: TERIPARATIDE
     Dates: start: 20080331
  4. FOLIC ACID. [Concomitant]
     Active Substance: FOLIC ACID
     Dosage: 1 D/F, UNK
  5. VITAMIN D [Concomitant]
     Active Substance: CHOLECALCIFEROL
     Dosage: 1000 U, DAILY (1/D)
  6. ZOCOR [Concomitant]
     Active Substance: SIMVASTATIN
     Dosage: 40 MG, UNK
  7. ASA [Concomitant]
     Active Substance: ASPIRIN
     Dosage: 81 MG, UNK
  8. CALCIUM [Concomitant]
     Active Substance: CALCIUM
     Dosage: UNK, 2/D

REACTIONS (2)
  - Blood pressure increased [Recovered/Resolved]
  - Blood calcium increased [Recovered/Resolved]

NARRATIVE: CASE EVENT DATE: 200802
